FAERS Safety Report 4747083-7 (Version None)
Quarter: 2005Q3

REPORT INFORMATION
  Report Type: 
  Country: None (occurrence: None)
  Receive Date: 20050815
  Receipt Date: 20050801
  Transmission Date: 20060218
  Serious: Yes (Death)
  Sender: FDA-Public Use
  Company Number: USA0506101717

PATIENT
  Age: 42 Year
  Sex: Female
  Weight: 98 kg

DRUGS (6)
  1. XIGRIS [Suspect]
     Indication: SEPSIS
     Dosage: 24 UG/KG/HR
     Dates: start: 20050617, end: 20050619
  2. DURAGESIC-100 [Concomitant]
  3. OXYCODONE HCL [Concomitant]
  4. PRILOSEC [Concomitant]
  5. DEXAMETHASONE [Concomitant]
  6. COUMADIN [Concomitant]

REACTIONS (1)
  - APACHE II SCORE [None]
